FAERS Safety Report 11374240 (Version 2)
Quarter: 2019Q1

REPORT INFORMATION
  Report Type: Spontaneous
  Country: CA (occurrence: CA)
  Receive Date: 20150812
  Receipt Date: 20190213
  Transmission Date: 20190417
  Serious: Yes (Hospitalization)
  Sender: FDA-Public Use
  Company Number: CA-009507513-1508CAN004497

PATIENT
  Age: 54 Year
  Sex: Female
  Weight: 70 kg

DRUGS (4)
  1. SUBLINOX [Concomitant]
     Active Substance: ZOLPIDEM TARTRATE
     Dosage: 5 MILLIGRAM, HS
     Route: 048
  2. INDERAL LA [Interacting]
     Active Substance: PROPRANOLOL HYDROCHLORIDE
     Indication: MIGRAINE PROPHYLAXIS
     Dosage: 160 MG, 1 EVERY 1 DAY
     Route: 048
     Dates: start: 20131022
  3. MAXALT [Suspect]
     Active Substance: RIZATRIPTAN BENZOATE
     Indication: MIGRAINE
     Dosage: 10 MG, TWICE A DAY AS REQUIRED (BID/PRN)
     Route: 048
     Dates: start: 20131022, end: 20150109
  4. BIOMED BIOCAL D FORTE [Concomitant]
     Dosage: 500 MG 400 UNITS 1 TAB, BID
     Route: 048

REACTIONS (5)
  - Colitis ischaemic [Recovered/Resolved]
  - Potentiating drug interaction [Recovered/Resolved]
  - Anaemia [Recovered/Resolved]
  - Abdominal pain [Recovered/Resolved]
  - Rectal haemorrhage [Recovered/Resolved]

NARRATIVE: CASE EVENT DATE: 20150106
